FAERS Safety Report 23648775 (Version 3)
Quarter: 2025Q1

REPORT INFORMATION
  Report Type: Spontaneous
  Country: US (occurrence: US)
  Receive Date: 20240319
  Receipt Date: 20250210
  Transmission Date: 20250408
  Serious: No
  Sender: XERIS PHARMACEUTICALS
  Company Number: US-BRIAN CONNER SVP QUALITY AND CHIEF COMPLIANCE OFFICER-2024XER00114

PATIENT
  Sex: Female

DRUGS (2)
  1. GVOKE [Suspect]
     Active Substance: GLUCAGON
  2. ZEPBOUND [Concomitant]
     Active Substance: TIRZEPATIDE

REACTIONS (6)
  - Device delivery system issue [Unknown]
  - Road traffic accident [Unknown]
  - Weight increased [Unknown]
  - Gait disturbance [Unknown]
  - Product storage error [Unknown]
  - Product label confusion [Unknown]

NARRATIVE: CASE EVENT DATE: 20240201
